FAERS Safety Report 7381827-3 (Version None)
Quarter: 2011Q1

REPORT INFORMATION
  Report Type: 
  Country: None (occurrence: None)
  Receive Date: 20110329
  Receipt Date: 20101109
  Transmission Date: 20110831
  Serious: Yes (Hospitalization, Other)
  Sender: FDA-Public Use
  Company Number: US-BAYER-201037553NA

PATIENT
  Sex: Female
  Weight: 123 kg

DRUGS (29)
  1. FAMOTIDINE [Concomitant]
     Dosage: 20 MG, UNK
     Route: 048
     Dates: start: 20040601
  2. OCELLA [Suspect]
     Indication: ACNE
  3. LAMICTAL [Concomitant]
     Dosage: 200 MG, HS
     Route: 048
     Dates: start: 20040201
  4. CLONAZEPAM [Concomitant]
     Indication: ANXIETY
     Dosage: 0.5 MG, BID
     Route: 048
     Dates: start: 20040601
  5. CIPRO [Concomitant]
     Dosage: 750 MG, BID
     Route: 048
     Dates: start: 20040708
  6. CLINDAMYCIN [Concomitant]
     Dosage: 15 MG, UNK
     Route: 048
     Dates: start: 20040526
  7. ZOLOFT [Concomitant]
     Dosage: 200 MG, HS
     Route: 048
     Dates: start: 20040601
  8. DILAUDID [Concomitant]
     Dosage: UNK
     Route: 048
     Dates: start: 20040101
  9. PHENERGAN HCL [Concomitant]
     Dosage: UNK
     Route: 048
     Dates: start: 20040101
  10. MAALOX [Concomitant]
     Dosage: UNK
     Route: 048
     Dates: start: 20040101
  11. IBUPROFEN [Concomitant]
     Dosage: 600 MG, UNK
     Route: 048
     Dates: start: 20040101
  12. OXYCODONE [Concomitant]
     Dosage: 5MG/300MG/4DAYS
     Route: 048
     Dates: start: 20040707
  13. WELLBUTRIN XL [Concomitant]
     Dosage: 150 MG, UNK
     Route: 048
     Dates: start: 20040301
  14. PREVACID [Concomitant]
     Dosage: UNK UNK, BID
  15. MECLIZINE [Concomitant]
     Dosage: 25 MG, UNK
     Route: 048
     Dates: start: 20040601
  16. EFFEXOR XR [Concomitant]
     Dosage: 75 MG, UNK
     Route: 048
     Dates: start: 20030301
  17. LORAZEPAM [Concomitant]
     Dosage: 0.5 MG, UNK
     Route: 048
     Dates: start: 20030701
  18. ZYRTEC [Concomitant]
     Dosage: 10 MG, QD
     Route: 048
     Dates: start: 20000301
  19. FLAGYL [Concomitant]
     Dosage: 500 MG, QID
     Route: 048
     Dates: start: 20040101
  20. ASPIRIN [Concomitant]
     Dosage: UNK UNK, QD
     Route: 048
     Dates: start: 20040101
  21. LEVOXYL [Concomitant]
     Dosage: 150 MG, QD
     Route: 048
     Dates: start: 20000201
  22. IMITREX [Concomitant]
     Dosage: 50 MG, PRN
     Route: 048
     Dates: start: 20040101
  23. ZOFRAN [Concomitant]
     Dosage: UNK
     Route: 048
     Dates: start: 20040101
  24. PAXIL CR [Concomitant]
     Dosage: 250 MG, UNK
     Route: 048
     Dates: start: 20040101
  25. YAZ [Suspect]
     Indication: ACNE
  26. YASMIN [Suspect]
     Indication: ACNE
  27. PROVERA [Concomitant]
     Dosage: 10 MG, UNK
     Route: 048
     Dates: start: 20010501
  28. MYLANTA AR [Concomitant]
     Dosage: UNK
     Route: 048
     Dates: start: 20040101
  29. DYAZIDE [Concomitant]
     Dosage: 37.5/25, QD
     Route: 048
     Dates: start: 20040401

REACTIONS (18)
  - CONSTIPATION [None]
  - INJURY [None]
  - GASTRITIS [None]
  - DEPRESSION [None]
  - PANCREATITIS ACUTE [None]
  - HEPATITIS [None]
  - PORTAL HYPERTENSION [None]
  - HEPATIC INFARCTION [None]
  - COAGULOPATHY [None]
  - VENOUS THROMBOSIS [None]
  - GASTROOESOPHAGEAL REFLUX DISEASE [None]
  - INTESTINAL ISCHAEMIA [None]
  - PORTAL VEIN THROMBOSIS [None]
  - MESENTERIC VASCULAR INSUFFICIENCY [None]
  - CANDIDIASIS [None]
  - BENIGN GASTRIC NEOPLASM [None]
  - URINARY RETENTION [None]
  - ABDOMINAL PAIN [None]
